FAERS Safety Report 4844108-5 (Version None)
Quarter: 2005Q4

REPORT INFORMATION
  Report Type: 
  Country: None (occurrence: None)
  Receive Date: 20051202
  Receipt Date: 20051123
  Transmission Date: 20060501
  Serious: Yes (Death, Hospitalization)
  Sender: FDA-Public Use
  Company Number: AU-ROCHE-425884

PATIENT
  Age: 67 Year
  Sex: Male
  Weight: 125 kg

DRUGS (8)
  1. NAPROSYN CR [Suspect]
     Indication: DRUG USE FOR UNKNOWN INDICATION
     Route: 048
  2. DIABEX [Suspect]
     Indication: DRUG USE FOR UNKNOWN INDICATION
     Route: 048
  3. DIAMICRON [Suspect]
     Indication: DRUG USE FOR UNKNOWN INDICATION
     Route: 048
  4. MICARDIS [Suspect]
     Indication: DRUG USE FOR UNKNOWN INDICATION
     Route: 048
  5. NATRILIX SR [Suspect]
     Indication: DRUG USE FOR UNKNOWN INDICATION
     Route: 048
  6. NORVASC [Concomitant]
  7. ACETAMINOPHEN W/ CODEINE [Concomitant]
  8. PRAVACHOL [Concomitant]

REACTIONS (3)
  - DEATH [None]
  - LACTIC ACIDOSIS [None]
  - RENAL FAILURE ACUTE [None]
